FAERS Safety Report 7815634-1 (Version None)
Quarter: 2011Q4

REPORT INFORMATION
  Report Type: 
  Country: None (occurrence: None)
  Receive Date: 20111012
  Receipt Date: 20110930
  Transmission Date: 20120403
  Serious: Yes (Death, Hospitalization)
  Sender: FDA-Public Use
  Company Number: IN-006448

PATIENT
  Age: 11 Year
  Sex: Male

DRUGS (5)
  1. DICYCLOMINE [Concomitant]
  2. MINIRIN [Suspect]
     Indication: ENURESIS
     Dosage: (1 PUFF NASAL)
     Route: 045
     Dates: start: 20110801, end: 20110801
  3. VOVERAN /00372303/ [Concomitant]
  4. DITROPAN [Concomitant]
  5. CEFOPERAZOLE W/SULBACTAM [Concomitant]

REACTIONS (2)
  - HYPONATRAEMIA [None]
  - CONVULSION [None]
